FAERS Safety Report 8180047-2 (Version None)
Quarter: 2012Q1

REPORT INFORMATION
  Report Type: 
  Country: None (occurrence: None)
  Receive Date: 20120302
  Receipt Date: 20120302
  Transmission Date: 20120608
  Serious: No
  Sender: FDA-Public Use
  Company Number: None

PATIENT
  Sex: Male
  Weight: 63.502 kg

DRUGS (2)
  1. SEROQUEL [Suspect]
     Indication: MAJOR DEPRESSION
     Dosage: 50.0 MG
     Route: 048
     Dates: start: 20111006, end: 20120115
  2. MIRTAZAPINE [Concomitant]
     Indication: MAJOR DEPRESSION
     Dosage: 30MG
     Route: 048
     Dates: start: 20111006, end: 20120115

REACTIONS (2)
  - VISION BLURRED [None]
  - DIZZINESS [None]
